FAERS Safety Report 20958107 (Version 1)
Quarter: 2022Q2

REPORT INFORMATION
  Report Type: Spontaneous
  Country: US (occurrence: US)
  Receive Date: 20220614
  Receipt Date: 20220614
  Transmission Date: 20220720
  Serious: No
  Sender: FDA-Public Use
  Company Number: US-PFM-2020-17314

PATIENT
  Sex: Female
  Weight: 16 kg

DRUGS (2)
  1. HEMANGEOL [Suspect]
     Active Substance: PROPRANOLOL HYDROCHLORIDE
     Indication: Infantile haemangioma
     Dosage: 4.2 ML, BID (2/DAY)
     Route: 065
  2. HEMANGEOL [Suspect]
     Active Substance: PROPRANOLOL HYDROCHLORIDE
     Dosage: 2.25ML BY MOUTH 2 TIMES DAILY FOR 1 WEEK, INCREASE TO 4.5ML BY MOUTH 2 TIMES DAILY FOR 1 WEEK
     Route: 048

REACTIONS (5)
  - Sleep terror [Unknown]
  - Insomnia [Unknown]
  - Drug ineffective [Unknown]
  - Off label use [Unknown]
  - Product administered to patient of inappropriate age [Unknown]
